FAERS Safety Report 7534389-1 (Version None)
Quarter: 2011Q2

REPORT INFORMATION
  Report Type: 
  Country: None (occurrence: None)
  Receive Date: 20110608
  Receipt Date: 20110516
  Transmission Date: 20111010
  Serious: No
  Sender: FDA-Public Use
  Company Number: US-AMGEN-USASP2011025243

PATIENT
  Sex: Female

DRUGS (6)
  1. PROLIA [Suspect]
     Indication: OSTEOPOROSIS POSTMENOPAUSAL
     Dosage: UNK UNK, Q6MO
  2. LISINOPRIL AND HYDROCHLOROTHIAZIDE [Concomitant]
  3. OMEPRAZOLE [Concomitant]
     Dosage: UNK
  4. LOVASTATIN [Concomitant]
     Dosage: 1 MG, QD
  5. LEVOXYL [Concomitant]
     Dosage: UNK UNK, QD
  6. VITAMIN A [Concomitant]
     Dosage: 1 IU, QMO

REACTIONS (2)
  - BACK PAIN [None]
  - ARTHRALGIA [None]
